FAERS Safety Report 15621709 (Version 1)
Quarter: 2018Q4

REPORT INFORMATION
  Report Type: Spontaneous
  Country: US (occurrence: US)
  Receive Date: 20181109
  Receipt Date: 20181109
  Transmission Date: 20190205
  Serious: Yes (Disabling)
  Sender: FDA-Public Use
  Company Number: None

PATIENT
  Age: 30 Year
  Sex: Male
  Weight: 73.48 kg

DRUGS (3)
  1. PROBIOTIC [Concomitant]
     Active Substance: PROBIOTICS NOS
  2. PROHANCE [Suspect]
     Active Substance: GADOTERIDOL
     Indication: SCAN WITH CONTRAST
     Dosage: ?          QUANTITY:15 ML MILLILITRE(S);OTHER ROUTE:INJECTION?
     Dates: start: 20181016, end: 20181016
  3. MAGNESIUM [Concomitant]
     Active Substance: MAGNESIUM

REACTIONS (11)
  - Fatigue [None]
  - Bone pain [None]
  - Myalgia [None]
  - Loss of personal independence in daily activities [None]
  - Peripheral coldness [None]
  - Dizziness [None]
  - Arthralgia [None]
  - Pain [None]
  - Tinnitus [None]
  - Erythema [None]
  - Paraesthesia [None]

NARRATIVE: CASE EVENT DATE: 20181018
